FAERS Safety Report 10028678 (Version 1)
Quarter: 2014Q1

REPORT INFORMATION
  Report Type: Spontaneous
  Country: US (occurrence: US)
  Receive Date: 20140321
  Receipt Date: 20140321
  Transmission Date: 20141002
  Serious: Yes (Other)
  Sender: FDA-Public Use
  Company Number: US-BAYER-2014-040091

PATIENT
  Age: 62 Year
  Sex: Female

DRUGS (2)
  1. GADAVIST [Suspect]
     Indication: NUCLEAR MAGNETIC RESONANCE IMAGING ABDOMINAL
     Dosage: 8 ML, UNK
     Dates: start: 20140313
  2. GADAVIST [Suspect]
     Indication: UTERINE MASS

REACTIONS (4)
  - Anaphylactic reaction [None]
  - Lip swelling [None]
  - Syncope [None]
  - Heart rate decreased [None]
